FAERS Safety Report 18175822 (Version 1)
Quarter: 2020Q3

REPORT INFORMATION
  Report Type: Spontaneous
  Country: AU (occurrence: AU)
  Receive Date: 20200820
  Receipt Date: 20200820
  Transmission Date: 20201103
  Serious: Yes (Other)
  Sender: FDA-Public Use
  Company Number: AU-PFIZER INC-2020319958

PATIENT
  Age: 31 Year
  Sex: Female
  Weight: 43.6 kg

DRUGS (5)
  1. SPIRONOLACTONE. [Suspect]
     Active Substance: SPIRONOLACTONE
     Indication: FUNCTIONAL GASTROINTESTINAL DISORDER
     Dosage: 25 MG, DAILY
  2. SPIRONOLACTONE. [Suspect]
     Active Substance: SPIRONOLACTONE
     Indication: DIURETIC THERAPY
  3. DIAZEPAM. [Concomitant]
     Active Substance: DIAZEPAM
     Dosage: 2 MG, AS NEEDED (AS REQUIRED)
  4. DICLOFENAC [Concomitant]
     Active Substance: DICLOFENAC
     Dosage: 50 MG, AS NEEDED (AS REQUIRED)
  5. POTASSIUM CHLORIDE. [Concomitant]
     Active Substance: POTASSIUM CHLORIDE
     Indication: BOWEL MOVEMENT IRREGULARITY
     Dosage: 6 DF, DAILY (6 TABLETS/DAY)

REACTIONS (3)
  - Urine potassium decreased [Unknown]
  - Metabolic alkalosis [Unknown]
  - Intentional product misuse [Unknown]
